FAERS Safety Report 5849092-3 (Version None)
Quarter: 2008Q3

REPORT INFORMATION
  Report Type: 
  Country: None (occurrence: None)
  Receive Date: 20080819
  Receipt Date: 20080813
  Transmission Date: 20090109
  Serious: Yes (Other)
  Sender: FDA-Public Use
  Company Number: PHHY2008BR18150

PATIENT
  Sex: Female

DRUGS (1)
  1. TOFRANIL [Suspect]
     Indication: DEPRESSION
     Dosage: 25 MG, UNK
     Dates: start: 20080813

REACTIONS (2)
  - DEPRESSION [None]
  - FEELING ABNORMAL [None]
